FAERS Safety Report 7138565-1 (Version None)
Quarter: 2010Q4

REPORT INFORMATION
  Report Type: 
  Country: None (occurrence: None)
  Receive Date: 20101201
  Receipt Date: 20101201
  Transmission Date: 20110411
  Serious: Yes (Life-Threatening, Other)
  Sender: FDA-Public Use
  Company Number: None

PATIENT
  Age: 7 Year
  Sex: Male
  Weight: 23.587 kg

DRUGS (1)
  1. FOCALIN XR [Suspect]
     Indication: DISTURBANCE IN ATTENTION
     Dosage: 5MG DAILY PO
     Route: 048
     Dates: start: 20101123, end: 20101127

REACTIONS (6)
  - AGGRESSION [None]
  - DERMATITIS EXFOLIATIVE [None]
  - NIGHTMARE [None]
  - SLEEP TERROR [None]
  - SOMNAMBULISM [None]
  - URINARY INCONTINENCE [None]
